FAERS Safety Report 16438362 (Version 2)
Quarter: 2019Q2

REPORT INFORMATION
  Report Type: Report from Study
  Country: US (occurrence: US)
  Receive Date: 20190617
  Receipt Date: 20190627
  Transmission Date: 20190711
  Serious: Yes (Hospitalization)
  Sender: FDA-Public Use
  Company Number: US-ROCHE-2335013

PATIENT
  Age: 76 Year
  Sex: Male
  Weight: 75 kg

DRUGS (9)
  1. PRAVASTATIN. [Concomitant]
     Active Substance: PRAVASTATIN
     Indication: CORONARY ARTERY DISEASE
     Route: 048
     Dates: start: 2007
  2. NASOCORT [Concomitant]
     Active Substance: BUDESONIDE
     Indication: CHRONIC SINUSITIS
     Route: 050
     Dates: start: 201508
  3. VITAMIN D3 [Concomitant]
     Active Substance: CHOLECALCIFEROL
     Indication: NUTRITIONAL SUPPLEMENTATION
     Dosage: 1000 U
     Route: 048
     Dates: start: 20170609
  4. ASPIRIN [ACETYLSALICYLIC ACID] [Concomitant]
     Active Substance: ASPIRIN
     Indication: CORONARY ARTERY DISEASE
     Route: 048
     Dates: start: 20170301
  5. PEPCID [Concomitant]
     Active Substance: FAMOTIDINE
     Indication: GASTROOESOPHAGEAL REFLUX DISEASE
     Route: 048
     Dates: start: 20160818
  6. CHLORAMBUCIL [Suspect]
     Active Substance: CHLORAMBUCIL
     Indication: CHRONIC LYMPHOCYTIC LEUKAEMIA
     Dosage: 0.5 MILLIGRAMS PER KILOGRAM (MG/KG) ORALLY AT DAY 1 AND DAY 15 AT OF EACH 28 DAY CYCLE FOR 12 CYCLE
     Route: 048
     Dates: start: 20160331
  7. COLACE [Concomitant]
     Active Substance: DOCUSATE SODIUM
     Indication: CONSTIPATION
     Route: 048
     Dates: start: 20160714
  8. FISH OIL [Concomitant]
     Active Substance: FISH OIL
     Route: 048
     Dates: start: 200111
  9. OBINUTUZUMAB. [Suspect]
     Active Substance: OBINUTUZUMAB
     Indication: CHRONIC LYMPHOCYTIC LEUKAEMIA
     Dosage: DATE OF MOST RECENT DOSE OF OBIBNUTUZUMAB PRIOR TO SAE WAS 15/SEP/2016 AT 14:12?100 MG OR 1000 MG, D
     Route: 042
     Dates: start: 20160331

REACTIONS (2)
  - Pulmonary embolism [Not Recovered/Not Resolved]
  - Pneumonia [Not Recovered/Not Resolved]

NARRATIVE: CASE EVENT DATE: 20190522
